FAERS Safety Report 24693451 (Version 2)
Quarter: 2024Q4

REPORT INFORMATION
  Report Type: Spontaneous
  Country: US (occurrence: US)
  Receive Date: 20241203
  Receipt Date: 20241223
  Transmission Date: 20250115
  Serious: No
  Sender: ROCHE
  Company Number: US-ROCHE-10000141481

PATIENT
  Age: 83 Year
  Sex: Female

DRUGS (1)
  1. ACTEMRA [Suspect]
     Active Substance: TOCILIZUMAB
     Indication: Product used for unknown indication
     Route: 065

REACTIONS (6)
  - No adverse event [Unknown]
  - Device malfunction [Unknown]
  - Needle issue [Unknown]
  - Device defective [Unknown]
  - Device malfunction [Unknown]
  - Accidental underdose [Unknown]

NARRATIVE: CASE EVENT DATE: 20241114
